FAERS Safety Report 10303144 (Version 3)
Quarter: 2014Q3

REPORT INFORMATION
  Report Type: Spontaneous
  Country: US (occurrence: None)
  Receive Date: 20140710
  Receipt Date: 20140905
  Transmission Date: 20150326
  Serious: No
  Sender: FDA-Public Use
  Company Number: 2014-US-008309

PATIENT
  Age: 64 Year
  Sex: Male

DRUGS (1)
  1. XYREM [Suspect]
     Active Substance: SODIUM OXYBATE
     Indication: NARCOLEPSY
     Route: 048
     Dates: start: 200308, end: 2005

REACTIONS (10)
  - Supraventricular tachycardia [None]
  - Myalgia [None]
  - Sleep apnoea syndrome [None]
  - Restless legs syndrome [None]
  - Gastrooesophageal reflux disease [None]
  - Hypercholesterolaemia [None]
  - Hip arthroplasty [None]
  - Type 2 diabetes mellitus [None]
  - Osteoarthritis [None]
  - Hypertension [None]
